FAERS Safety Report 20803836 (Version 1)
Quarter: 2022Q2

REPORT INFORMATION
  Report Type: Spontaneous
  Country: US (occurrence: US)
  Receive Date: 20220509
  Receipt Date: 20220509
  Transmission Date: 20220721
  Serious: No
  Sender: FDA-Public Use
  Company Number: US-PFIZER INC-202101530131

PATIENT
  Age: 63 Year
  Sex: Female
  Weight: 68.8 kg

DRUGS (5)
  1. VANCOMYCIN HYDROCHLORIDE [Suspect]
     Active Substance: VANCOMYCIN HYDROCHLORIDE
     Indication: Cellulitis
     Dosage: UNK
     Route: 042
     Dates: start: 20211021
  2. CIPROFLOXACIN [Suspect]
     Active Substance: CIPROFLOXACIN
     Indication: Cellulitis
     Dosage: UNK
     Route: 048
     Dates: start: 20211021
  3. MORPHINE [Concomitant]
     Active Substance: MORPHINE
     Indication: Cellulitis
     Dosage: UNK
     Dates: start: 202110
  4. TORADOL [Concomitant]
     Active Substance: KETOROLAC TROMETHAMINE
     Indication: Cellulitis
     Dosage: UNK
     Dates: start: 202110
  5. CELEBREX [Concomitant]
     Active Substance: CELECOXIB
     Indication: Cellulitis
     Dosage: UNK
     Dates: start: 202110

REACTIONS (1)
  - Incision site discharge [Unknown]

NARRATIVE: CASE EVENT DATE: 20211001
